FAERS Safety Report 18814302 (Version 2)
Quarter: 2021Q2

REPORT INFORMATION
  Report Type: Spontaneous
  Country: JP (occurrence: JP)
  Receive Date: 20210201
  Receipt Date: 20210602
  Transmission Date: 20210717
  Serious: Yes (Other)
  Sender: FDA-Public Use
  Company Number: JP-AMGEN-JPNSP2020213656

PATIENT
  Age: 89 Year
  Sex: Female

DRUGS (3)
  1. BLINCYTO [Suspect]
     Active Substance: BLINATUMOMAB
     Indication: ACUTE LYMPHOCYTIC LEUKAEMIA RECURRENT
     Dosage: 9 MICROGRAM, QD
     Route: 041
     Dates: start: 20201229
  2. BLINCYTO [Suspect]
     Active Substance: BLINATUMOMAB
     Dosage: UNK
     Route: 041
     Dates: end: 20210526
  3. BLINCYTO [Suspect]
     Active Substance: BLINATUMOMAB
     Dosage: 2.5 MICROGRAM, QD
     Route: 041

REACTIONS (6)
  - Pyrexia [Recovering/Resolving]
  - Hypoxia [Recovering/Resolving]
  - Acute lymphocytic leukaemia recurrent [Unknown]
  - Speech disorder [Not Recovered/Not Resolved]
  - Neurological symptom [Unknown]
  - Off label use [Unknown]

NARRATIVE: CASE EVENT DATE: 20201229
